FAERS Safety Report 21883318 (Version 1)
Quarter: 2023Q1

REPORT INFORMATION
  Report Type: Spontaneous
  Country: CN (occurrence: CN)
  Receive Date: 20230119
  Receipt Date: 20230119
  Transmission Date: 20230417
  Serious: Yes (Hospitalization, Other)
  Sender: FDA-Public Use
  Company Number: CN-SUN PHARMACEUTICAL INDUSTRIES LTD-2023R1-373804

PATIENT
  Age: 58 Year
  Sex: Male

DRUGS (5)
  1. BUDESONIDE [Suspect]
     Active Substance: BUDESONIDE
     Indication: Pneumonitis
     Dosage: 2 MILLIGRAM, TID
     Route: 065
  2. IPRATROPIUM [Suspect]
     Active Substance: IPRATROPIUM
     Indication: Pneumonitis
     Dosage: 500 MICROGRAM, TID
     Route: 065
  3. ACETYLCYSTEINE [Suspect]
     Active Substance: ACETYLCYSTEINE
     Indication: Pneumonitis
     Dosage: 0.3 GRAM, TID
  4. DOXOFYLLINE [Suspect]
     Active Substance: DOXOFYLLINE
     Indication: Pneumonitis
     Dosage: 0.2 GRAM, BID
     Route: 065
  5. CAMRELIZUMAB [Concomitant]
     Active Substance: CAMRELIZUMAB
     Indication: Lung carcinoma cell type unspecified stage IV
     Dosage: 200 MILLIGRAM Q3W
     Route: 065

REACTIONS (1)
  - Condition aggravated [Unknown]

NARRATIVE: CASE EVENT DATE: 20201201
